FAERS Safety Report 15423529 (Version 1)
Quarter: 2018Q3

REPORT INFORMATION
  Report Type: Spontaneous
  Country: US (occurrence: US)
  Receive Date: 20180925
  Receipt Date: 20180925
  Transmission Date: 20181010
  Serious: No
  Sender: FDA-Public Use
  Company Number: US-PFIZER INC-2018376671

PATIENT
  Age: 75 Year
  Sex: Male
  Weight: 94.35 kg

DRUGS (4)
  1. LYRICA [Suspect]
     Active Substance: PREGABALIN
     Dosage: 50 MG, 1X/DAY
     Route: 048
     Dates: start: 2018
  2. PRIMIDONE. [Concomitant]
     Active Substance: PRIMIDONE
     Indication: FEELING JITTERY
     Dosage: 50 MG, AS NEEDED (TWICE DAILY AS NEEDED), (ONE TABLET WITHOUT A DOUBT EVERY DAY)
     Route: 048
  3. LYRICA [Suspect]
     Active Substance: PREGABALIN
     Indication: FIBROMYALGIA
     Dosage: UNK
  4. PRIMIDONE. [Concomitant]
     Active Substance: PRIMIDONE
     Indication: MUSCLE SPASMS

REACTIONS (10)
  - Dizziness [Unknown]
  - Body height decreased [Unknown]
  - Aphonia [Unknown]
  - Dysphonia [Unknown]
  - Sinusitis [Not Recovered/Not Resolved]
  - Weight decreased [Unknown]
  - Burning sensation [Unknown]
  - Fungal infection [Unknown]
  - Fatigue [Unknown]
  - Tinea cruris [Unknown]

NARRATIVE: CASE EVENT DATE: 2017
